FAERS Safety Report 7633707-3 (Version None)
Quarter: 2011Q3

REPORT INFORMATION
  Report Type: 
  Country: None (occurrence: None)
  Receive Date: 20110725
  Receipt Date: 20110721
  Transmission Date: 20111222
  Serious: Yes (Life-Threatening)
  Sender: FDA-Public Use
  Company Number: JP-SANOFI-AVENTIS-2011SA046709

PATIENT
  Age: 79 Year
  Sex: Female

DRUGS (4)
  1. OXALIPLATIN [Suspect]
     Indication: LARGE INTESTINE CARCINOMA
     Route: 041
     Dates: start: 20110601, end: 20110601
  2. LEUCOVORIN CALCIUM [Suspect]
     Indication: LARGE INTESTINE CARCINOMA
     Route: 041
     Dates: start: 20110601, end: 20110601
  3. ANTINEOPLASTIC AGENTS [Suspect]
     Indication: LARGE INTESTINE CARCINOMA
     Route: 041
     Dates: start: 20110601, end: 20110601
  4. FLUOROURACIL [Suspect]
     Indication: LARGE INTESTINE CARCINOMA
     Route: 040
     Dates: start: 20110601, end: 20110601

REACTIONS (2)
  - MUSCLE SPASMS [None]
  - ALTERED STATE OF CONSCIOUSNESS [None]
